FAERS Safety Report 6741165-6 (Version None)
Quarter: 2010Q2

REPORT INFORMATION
  Report Type: 
  Country: None (occurrence: None)
  Receive Date: 20100526
  Receipt Date: 20100514
  Transmission Date: 20101027
  Serious: Yes (Hospitalization)
  Sender: FDA-Public Use
  Company Number: US-BRISTOL-MYERS SQUIBB COMPANY-15117948

PATIENT
  Age: 61 Year
  Sex: Male
  Weight: 72 kg

DRUGS (8)
  1. CETUXIMAB [Suspect]
     Indication: NON-SMALL CELL LUNG CANCER
     Dosage: INTERRUPTED ON 06MAY10. THERAPY DURTN:7 DAYS
     Route: 042
     Dates: start: 20100429
  2. PACLITAXEL [Suspect]
     Indication: NON-SMALL CELL LUNG CANCER
     Route: 042
     Dates: start: 20100429
  3. CARBOPLATIN [Suspect]
     Indication: NON-SMALL CELL LUNG CANCER
     Route: 042
     Dates: start: 20100429
  4. ZOFRAN [Concomitant]
     Route: 048
  5. PHENERGAN [Concomitant]
     Indication: NAUSEA
     Dosage: TAKE EVERY 6 HRS
     Route: 048
  6. DARVOCET-N 100 [Concomitant]
     Indication: PAIN
     Dosage: EVERY 4-6 HRS
     Route: 048
  7. LEVAQUIN [Concomitant]
     Route: 042
  8. LOVENOX [Concomitant]
     Route: 058

REACTIONS (1)
  - PLEURAL EFFUSION [None]
